FAERS Safety Report 4794427-6 (Version None)
Quarter: 2005Q4

REPORT INFORMATION
  Report Type: 
  Country: None (occurrence: None)
  Receive Date: 20051011
  Receipt Date: 20050929
  Transmission Date: 20060501
  Serious: Yes (Death)
  Sender: FDA-Public Use
  Company Number: US-ROCHE-419662

PATIENT
  Age: 4 Month
  Sex: Male

DRUGS (2)
  1. LARIAM [Suspect]
     Indication: MALARIA PROPHYLAXIS
     Dosage: FREQUENCY: WEEKLY.
     Route: 048
     Dates: start: 20050115, end: 20050415
  2. IMMUNIZATIONS [Concomitant]
     Dosage: FIRST AND SECOND SERIES OF CHILDHOOD IMMUNIZATIONS NOS.
     Route: 058
     Dates: start: 20050115

REACTIONS (4)
  - CARDIAC ARREST [None]
  - CONVULSION [None]
  - HAEMOLYTIC URAEMIC SYNDROME [None]
  - VOMITING [None]
